FAERS Safety Report 5114144-2 (Version None)
Quarter: 2006Q3

REPORT INFORMATION
  Report Type: 
  Country: None (occurrence: None)
  Receive Date: 20060921
  Receipt Date: 20060914
  Transmission Date: 20061208
  Serious: Yes (Hospitalization)
  Sender: FDA-Public Use
  Company Number: 229608

PATIENT
  Age: 41 Year
  Sex: Female
  Weight: 65.8 kg

DRUGS (5)
  1. XOLAIR [Suspect]
     Indication: ASTHMA
     Dosage: 150 MG, SUBCUTANEOUS
     Route: 058
     Dates: start: 20060824, end: 20060824
  2. REACTINE       (CETIRIZINE HYDROCHLORIDE) [Concomitant]
  3. ASMANEX TWISTHALER [Concomitant]
  4. ASTELIN [Concomitant]
  5. ADVIL [Concomitant]

REACTIONS (3)
  - ANAPHYLACTIC REACTION [None]
  - BLOOD PRESSURE DECREASED [None]
  - CHEST DISCOMFORT [None]
